FAERS Safety Report 25442015 (Version 2)
Quarter: 2025Q2

REPORT INFORMATION
  Report Type: Spontaneous
  Country: IT (occurrence: IT)
  Receive Date: 20250616
  Receipt Date: 20250618
  Transmission Date: 20250716
  Serious: Yes (Other)
  Sender: GILEAD
  Company Number: IT-GILEAD-2025-0716462

PATIENT
  Sex: Male

DRUGS (1)
  1. VOSEVI [Suspect]
     Active Substance: SOFOSBUVIR\VELPATASVIR\VOXILAPREVIR
     Indication: Chronic hepatitis C
     Route: 065
     Dates: start: 202405, end: 202408

REACTIONS (2)
  - Hepatitis C [Unknown]
  - Drug ineffective [Unknown]
